FAERS Safety Report 7797597-0 (Version None)
Quarter: 2011Q4

REPORT INFORMATION
  Report Type: 
  Country: None (occurrence: None)
  Receive Date: 20111005
  Receipt Date: 20110928
  Transmission Date: 20120403
  Serious: Yes (Hospitalization)
  Sender: FDA-Public Use
  Company Number: DE-UCBSA-042367

PATIENT
  Age: 57 Year
  Sex: Male

DRUGS (2)
  1. VIMPAT [Suspect]
     Dates: start: 20110101
  2. LAMOTRIGINE [Concomitant]

REACTIONS (1)
  - AMNESIA [None]
